FAERS Safety Report 6786628-2 (Version None)
Quarter: 2010Q2

REPORT INFORMATION
  Report Type: 
  Country: None (occurrence: None)
  Receive Date: 20100623
  Receipt Date: 20100618
  Transmission Date: 20101027
  Serious: Yes (Hospitalization)
  Sender: FDA-Public Use
  Company Number: DE-BRISTOL-MYERS SQUIBB COMPANY-15099054

PATIENT
  Age: 10 Year
  Sex: Male
  Weight: 66 kg

DRUGS (1)
  1. ABILIFY [Suspect]
     Indication: TOURETTE'S DISORDER
     Route: 048
     Dates: start: 20090501, end: 20100501

REACTIONS (1)
  - VISUAL ACUITY REDUCED [None]
